FAERS Safety Report 6499160-0 (Version None)
Quarter: 2009Q4

REPORT INFORMATION
  Report Type: 
  Country: None (occurrence: None)
  Receive Date: 20091215
  Receipt Date: 20091209
  Transmission Date: 20100525
  Serious: Yes (Life-Threatening, Hospitalization, Disabling)
  Sender: FDA-Public Use
  Company Number: US-ELI_LILLY_AND_COMPANY-US200906003306

PATIENT
  Sex: Male

DRUGS (4)
  1. BYETTA [Suspect]
     Indication: TYPE 2 DIABETES MELLITUS
     Dosage: 5 UG, 2/D
     Dates: start: 20071228, end: 20080107
  2. AMARYL [Concomitant]
     Indication: TYPE 2 DIABETES MELLITUS
     Dates: end: 20080101
  3. LANTUS [Concomitant]
     Dates: start: 20080101
  4. HUMALOG                                 /GFR/ [Concomitant]
     Dates: start: 20080101

REACTIONS (4)
  - CEREBROVASCULAR ACCIDENT [None]
  - HYPERSENSITIVITY [None]
  - OFF LABEL USE [None]
  - PANCREATITIS [None]
